FAERS Safety Report 6288113-3 (Version None)
Quarter: 2009Q3

REPORT INFORMATION
  Report Type: 
  Country: None (occurrence: None)
  Receive Date: 20090729
  Receipt Date: 20081219
  Transmission Date: 20100115
  Serious: No
  Sender: FDA-Public Use
  Company Number: A0759297A

PATIENT
  Age: 50 Year
  Sex: Male

DRUGS (2)
  1. ZANTAC [Suspect]
     Indication: DRUG USE FOR UNKNOWN INDICATION
     Route: 048
  2. METHADONE HCL [Concomitant]

REACTIONS (1)
  - DRUG SCREEN POSITIVE [None]
